FAERS Safety Report 24620600 (Version 5)
Quarter: 2025Q3

REPORT INFORMATION
  Report Type: Spontaneous
  Country: CA (occurrence: CA)
  Receive Date: 20241114
  Receipt Date: 20250814
  Transmission Date: 20251020
  Serious: Yes (Death, Other)
  Sender: BRISTOL-MYERS SQUIBB COMPANY
  Company Number: CA-BRISTOL-MYERS SQUIBB COMPANY-2024-178674

PATIENT
  Age: 44 Year
  Sex: Female

DRUGS (711)
  1. ORENCIA [Suspect]
     Active Substance: ABATACEPT
     Indication: Rheumatoid arthritis
  2. ORENCIA [Suspect]
     Active Substance: ABATACEPT
     Indication: Psoriatic arthropathy
  3. ORENCIA [Suspect]
     Active Substance: ABATACEPT
     Indication: Rheumatoid arthritis
     Route: 042
  4. ORENCIA [Suspect]
     Active Substance: ABATACEPT
     Indication: Psoriatic arthropathy
  5. ORENCIA [Suspect]
     Active Substance: ABATACEPT
     Indication: Rheumatoid arthritis
     Route: 058
  6. ORENCIA [Suspect]
     Active Substance: ABATACEPT
     Indication: Psoriatic arthropathy
  7. ORENCIA [Suspect]
     Active Substance: ABATACEPT
     Route: 058
  8. ORENCIA [Suspect]
     Active Substance: ABATACEPT
     Route: 042
  9. ORENCIA [Suspect]
     Active Substance: ABATACEPT
     Route: 041
  10. ORENCIA [Suspect]
     Active Substance: ABATACEPT
     Route: 058
  11. ORENCIA [Suspect]
     Active Substance: ABATACEPT
     Route: 041
  12. ORENCIA [Suspect]
     Active Substance: ABATACEPT
     Route: 048
  13. TRIAMCINOLONE ACETONIDE [Suspect]
     Active Substance: TRIAMCINOLONE ACETONIDE
     Indication: Rheumatoid arthritis
     Route: 014
  14. ACETAMINOPHEN [Concomitant]
     Active Substance: ACETAMINOPHEN
     Indication: Rheumatoid arthritis
  15. ACETAMINOPHEN [Concomitant]
     Active Substance: ACETAMINOPHEN
     Indication: Pain
  16. ACETAMINOPHEN [Concomitant]
     Active Substance: ACETAMINOPHEN
  17. ACETAMINOPHEN\OXYCODONE HYDROCHLORIDE [Concomitant]
     Active Substance: ACETAMINOPHEN\OXYCODONE HYDROCHLORIDE
     Indication: Product used for unknown indication
  18. ACTEMRA [Concomitant]
     Active Substance: TOCILIZUMAB
     Indication: Rheumatoid arthritis
     Route: 042
  19. ACTEMRA [Concomitant]
     Active Substance: TOCILIZUMAB
     Indication: Pain
  20. ACTEMRA [Concomitant]
     Active Substance: TOCILIZUMAB
     Route: 042
  21. ACTEMRA [Concomitant]
     Active Substance: TOCILIZUMAB
     Route: 042
  22. ACTEMRA [Concomitant]
     Active Substance: TOCILIZUMAB
     Route: 042
  23. ACTEMRA [Concomitant]
     Active Substance: TOCILIZUMAB
  24. ACTEMRA [Concomitant]
     Active Substance: TOCILIZUMAB
     Route: 042
  25. ACTEMRA [Concomitant]
     Active Substance: TOCILIZUMAB
     Route: 042
  26. ACTEMRA [Concomitant]
     Active Substance: TOCILIZUMAB
  27. ACTEMRA [Concomitant]
     Active Substance: TOCILIZUMAB
     Route: 042
  28. ACTEMRA [Concomitant]
     Active Substance: TOCILIZUMAB
     Route: 042
  29. ACTEMRA [Concomitant]
     Active Substance: TOCILIZUMAB
     Route: 042
  30. ACTEMRA [Concomitant]
     Active Substance: TOCILIZUMAB
  31. ACTEMRA [Concomitant]
     Active Substance: TOCILIZUMAB
     Route: 042
  32. ACTEMRA [Concomitant]
     Active Substance: TOCILIZUMAB
     Route: 058
  33. ACTEMRA [Concomitant]
     Active Substance: TOCILIZUMAB
     Route: 061
  34. ACTEMRA [Concomitant]
     Active Substance: TOCILIZUMAB
     Route: 058
  35. ACTEMRA [Concomitant]
     Active Substance: TOCILIZUMAB
     Route: 048
  36. ACTEMRA [Concomitant]
     Active Substance: TOCILIZUMAB
     Route: 048
  37. ACTEMRA [Concomitant]
     Active Substance: TOCILIZUMAB
     Route: 042
  38. ACTEMRA [Concomitant]
     Active Substance: TOCILIZUMAB
  39. ACTEMRA [Concomitant]
     Active Substance: TOCILIZUMAB
  40. ACTEMRA [Concomitant]
     Active Substance: TOCILIZUMAB
     Route: 042
  41. ACTEMRA [Concomitant]
     Active Substance: TOCILIZUMAB
  42. ACTEMRA [Concomitant]
     Active Substance: TOCILIZUMAB
     Route: 042
  43. ACTEMRA [Concomitant]
     Active Substance: TOCILIZUMAB
     Route: 058
  44. ACTEMRA [Concomitant]
     Active Substance: TOCILIZUMAB
     Route: 042
  45. ACTEMRA [Concomitant]
     Active Substance: TOCILIZUMAB
     Route: 042
  46. ACTEMRA [Concomitant]
     Active Substance: TOCILIZUMAB
     Route: 048
  47. ACTEMRA [Concomitant]
     Active Substance: TOCILIZUMAB
     Route: 042
  48. ACTEMRA [Concomitant]
     Active Substance: TOCILIZUMAB
     Route: 058
  49. ACTEMRA [Concomitant]
     Active Substance: TOCILIZUMAB
     Route: 042
  50. ACTEMRA [Concomitant]
     Active Substance: TOCILIZUMAB
     Route: 042
  51. ACTEMRA [Concomitant]
     Active Substance: TOCILIZUMAB
     Route: 042
  52. ACTEMRA [Concomitant]
     Active Substance: TOCILIZUMAB
     Route: 016
  53. ACTEMRA [Concomitant]
     Active Substance: TOCILIZUMAB
     Route: 048
  54. ACTEMRA [Concomitant]
     Active Substance: TOCILIZUMAB
     Route: 042
  55. ADALIMUMAB [Concomitant]
     Active Substance: ADALIMUMAB
     Indication: Psoriatic arthropathy
     Route: 058
  56. ADALIMUMAB [Concomitant]
     Active Substance: ADALIMUMAB
     Route: 048
  57. ADALIMUMAB [Concomitant]
     Active Substance: ADALIMUMAB
     Route: 058
  58. ALENDRONIC ACID [Concomitant]
     Active Substance: ALENDRONIC ACID
     Indication: Rheumatoid arthritis
     Route: 048
  59. ALENDRONIC ACID [Concomitant]
     Active Substance: ALENDRONIC ACID
  60. ALENDRONIC ACID [Concomitant]
     Active Substance: ALENDRONIC ACID
  61. ALENDRONIC ACID [Concomitant]
     Active Substance: ALENDRONIC ACID
  62. ALENDRONIC ACID [Concomitant]
     Active Substance: ALENDRONIC ACID
     Route: 048
  63. ALENDRONIC ACID [Concomitant]
     Active Substance: ALENDRONIC ACID
     Route: 048
  64. PREDNISONE [Concomitant]
     Active Substance: PREDNISONE
     Indication: Rheumatoid arthritis
     Route: 048
  65. PREDNISONE [Concomitant]
     Active Substance: PREDNISONE
     Indication: Systemic lupus erythematosus
  66. PREDNISONE [Concomitant]
     Active Substance: PREDNISONE
     Indication: Synovitis
  67. PREDNISONE [Concomitant]
     Active Substance: PREDNISONE
     Indication: Psoriatic arthropathy
     Route: 048
  68. PREDNISONE [Concomitant]
     Active Substance: PREDNISONE
     Indication: Pemphigus
     Route: 048
  69. PREDNISONE [Concomitant]
     Active Substance: PREDNISONE
     Indication: Inflammation
     Route: 048
  70. PREDNISONE [Concomitant]
     Active Substance: PREDNISONE
     Indication: Bursitis
  71. PREDNISONE [Concomitant]
     Active Substance: PREDNISONE
  72. APREMILAST [Concomitant]
     Active Substance: APREMILAST
     Indication: Product used for unknown indication
     Route: 048
  73. APREMILAST [Concomitant]
     Active Substance: APREMILAST
     Route: 048
  74. APREMILAST [Concomitant]
     Active Substance: APREMILAST
     Route: 042
  75. APREMILAST [Concomitant]
     Active Substance: APREMILAST
  76. APREPITANT [Concomitant]
     Active Substance: APREPITANT
     Indication: Rheumatoid arthritis
     Route: 042
  77. APREPITANT [Concomitant]
     Active Substance: APREPITANT
  78. APREPITANT [Concomitant]
     Active Substance: APREPITANT
  79. APREPITANT [Concomitant]
     Active Substance: APREPITANT
  80. APREPITANT [Concomitant]
     Active Substance: APREPITANT
  81. APREPITANT [Concomitant]
     Active Substance: APREPITANT
     Route: 042
  82. ARAVA [Concomitant]
     Active Substance: LEFLUNOMIDE
     Indication: Rheumatoid arthritis
     Route: 048
  83. ARAVA [Concomitant]
     Active Substance: LEFLUNOMIDE
     Route: 048
  84. ARAVA [Concomitant]
     Active Substance: LEFLUNOMIDE
  85. ARAVA [Concomitant]
     Active Substance: LEFLUNOMIDE
     Route: 048
  86. ARAVA [Concomitant]
     Active Substance: LEFLUNOMIDE
     Route: 048
  87. CELECOXIB [Concomitant]
     Active Substance: CELECOXIB
     Indication: Rheumatoid arthritis
  88. CELECOXIB [Concomitant]
     Active Substance: CELECOXIB
     Indication: Psoriatic arthropathy
  89. CELECOXIB [Concomitant]
     Active Substance: CELECOXIB
  90. CELECOXIB [Concomitant]
     Active Substance: CELECOXIB
     Route: 048
  91. CELECOXIB [Concomitant]
     Active Substance: CELECOXIB
  92. CELECOXIB [Concomitant]
     Active Substance: CELECOXIB
     Route: 048
  93. CELECOXIB [Concomitant]
     Active Substance: CELECOXIB
  94. CELECOXIB [Concomitant]
     Active Substance: CELECOXIB
  95. CERTOLIZUMAB PEGOL [Concomitant]
     Active Substance: CERTOLIZUMAB PEGOL
     Indication: Product used for unknown indication
  96. CETIRIZINE HYDROCHLORIDE [Concomitant]
     Active Substance: CETIRIZINE HYDROCHLORIDE
     Indication: Rheumatoid arthritis
  97. CETIRIZINE HYDROCHLORIDE [Concomitant]
     Active Substance: CETIRIZINE HYDROCHLORIDE
     Route: 048
  98. CETIRIZINE HYDROCHLORIDE [Concomitant]
     Active Substance: CETIRIZINE HYDROCHLORIDE
     Route: 048
  99. CETIRIZINE HYDROCHLORIDE [Concomitant]
     Active Substance: CETIRIZINE HYDROCHLORIDE
     Route: 048
  100. CETIRIZINE HYDROCHLORIDE [Concomitant]
     Active Substance: CETIRIZINE HYDROCHLORIDE
  101. CETIRIZINE HYDROCHLORIDE [Concomitant]
     Active Substance: CETIRIZINE HYDROCHLORIDE
  102. CETIRIZINE HYDROCHLORIDE [Concomitant]
     Active Substance: CETIRIZINE HYDROCHLORIDE
  103. CETIRIZINE HYDROCHLORIDE [Concomitant]
     Active Substance: CETIRIZINE HYDROCHLORIDE
     Route: 048
  104. CETIRIZINE HYDROCHLORIDE [Concomitant]
     Active Substance: CETIRIZINE HYDROCHLORIDE
  105. CETIRIZINE HYDROCHLORIDE [Concomitant]
     Active Substance: CETIRIZINE HYDROCHLORIDE
  106. CETIRIZINE HYDROCHLORIDE [Concomitant]
     Active Substance: CETIRIZINE HYDROCHLORIDE
  107. CETIRIZINE HYDROCHLORIDE [Concomitant]
     Active Substance: CETIRIZINE HYDROCHLORIDE
  108. CETIRIZINE HYDROCHLORIDE [Concomitant]
     Active Substance: CETIRIZINE HYDROCHLORIDE
     Route: 048
  109. CETIRIZINE HYDROCHLORIDE [Concomitant]
     Active Substance: CETIRIZINE HYDROCHLORIDE
     Route: 048
  110. CETIRIZINE HYDROCHLORIDE [Concomitant]
     Active Substance: CETIRIZINE HYDROCHLORIDE
     Route: 048
  111. CETIRIZINE HYDROCHLORIDE [Concomitant]
     Active Substance: CETIRIZINE HYDROCHLORIDE
     Route: 048
  112. CETIRIZINE HYDROCHLORIDE [Concomitant]
     Active Substance: CETIRIZINE HYDROCHLORIDE
  113. CETIRIZINE HYDROCHLORIDE [Concomitant]
     Active Substance: CETIRIZINE HYDROCHLORIDE
  114. CHLORAPREP [Concomitant]
     Active Substance: CHLORHEXIDINE GLUCONATE\ISOPROPYL ALCOHOL
     Indication: Synovitis
     Route: 061
  115. CHLORAPREP [Concomitant]
     Active Substance: CHLORHEXIDINE GLUCONATE\ISOPROPYL ALCOHOL
     Indication: Psoriatic arthropathy
  116. CHLORAPREP [Concomitant]
     Active Substance: CHLORHEXIDINE GLUCONATE\ISOPROPYL ALCOHOL
     Route: 061
  117. CHLORAPREP [Concomitant]
     Active Substance: CHLORHEXIDINE GLUCONATE\ISOPROPYL ALCOHOL
     Route: 048
  118. CHLORAPREP [Concomitant]
     Active Substance: CHLORHEXIDINE GLUCONATE\ISOPROPYL ALCOHOL
     Route: 048
  119. CHLORAPREP [Concomitant]
     Active Substance: CHLORHEXIDINE GLUCONATE\ISOPROPYL ALCOHOL
     Route: 048
  120. CHLORAPREP [Concomitant]
     Active Substance: CHLORHEXIDINE GLUCONATE\ISOPROPYL ALCOHOL
  121. CHLORHEXIDINE GLUCONATE [Concomitant]
     Active Substance: CHLORHEXIDINE GLUCONATE
     Indication: Product used for unknown indication
     Route: 061
  122. CHLORHEXIDINE GLUCONATE [Concomitant]
     Active Substance: CHLORHEXIDINE GLUCONATE
     Route: 048
  123. CHLORHEXIDINE GLUCONATE [Concomitant]
     Active Substance: CHLORHEXIDINE GLUCONATE
     Route: 002
  124. CHLORHEXIDINE GLUCONATE\ISOPROPYL ALCOHOL [Concomitant]
     Active Substance: CHLORHEXIDINE GLUCONATE\ISOPROPYL ALCOHOL
     Indication: Product used for unknown indication
     Route: 048
  125. CHLORHEXIDINE GLUCONATE\ISOPROPYL ALCOHOL [Concomitant]
     Active Substance: CHLORHEXIDINE GLUCONATE\ISOPROPYL ALCOHOL
     Route: 002
  126. CHLORHEXIDINE GLUCONATE\ISOPROPYL ALCOHOL [Concomitant]
     Active Substance: CHLORHEXIDINE GLUCONATE\ISOPROPYL ALCOHOL
     Route: 061
  127. CIMZIA [Concomitant]
     Active Substance: CERTOLIZUMAB PEGOL
     Indication: Rheumatoid arthritis
     Route: 058
  128. CIMZIA [Concomitant]
     Active Substance: CERTOLIZUMAB PEGOL
     Indication: Psoriatic arthropathy
     Route: 058
  129. CIMZIA [Concomitant]
     Active Substance: CERTOLIZUMAB PEGOL
     Indication: Psoriasis
     Route: 058
  130. CIMZIA [Concomitant]
     Active Substance: CERTOLIZUMAB PEGOL
  131. CIMZIA [Concomitant]
     Active Substance: CERTOLIZUMAB PEGOL
  132. CIMZIA [Concomitant]
     Active Substance: CERTOLIZUMAB PEGOL
  133. CIMZIA [Concomitant]
     Active Substance: CERTOLIZUMAB PEGOL
     Route: 058
  134. CIMZIA [Concomitant]
     Active Substance: CERTOLIZUMAB PEGOL
     Route: 058
  135. CIMZIA [Concomitant]
     Active Substance: CERTOLIZUMAB PEGOL
     Route: 058
  136. CIMZIA [Concomitant]
     Active Substance: CERTOLIZUMAB PEGOL
  137. CIMZIA [Concomitant]
     Active Substance: CERTOLIZUMAB PEGOL
     Route: 042
  138. CIMZIA [Concomitant]
     Active Substance: CERTOLIZUMAB PEGOL
     Route: 005
  139. CIMZIA [Concomitant]
     Active Substance: CERTOLIZUMAB PEGOL
     Route: 058
  140. CIMZIA [Concomitant]
     Active Substance: CERTOLIZUMAB PEGOL
     Route: 042
  141. CIMZIA [Concomitant]
     Active Substance: CERTOLIZUMAB PEGOL
  142. CIMZIA [Concomitant]
     Active Substance: CERTOLIZUMAB PEGOL
  143. CIMZIA [Concomitant]
     Active Substance: CERTOLIZUMAB PEGOL
  144. CORTISONE ACETATE [Concomitant]
     Active Substance: CORTISONE ACETATE
     Indication: Rheumatoid arthritis
  145. CORTISONE ACETATE [Concomitant]
     Active Substance: CORTISONE ACETATE
     Route: 048
  146. CORTISONE ACETATE [Concomitant]
     Active Substance: CORTISONE ACETATE
     Route: 058
  147. CORTISONE ACETATE [Concomitant]
     Active Substance: CORTISONE ACETATE
     Route: 003
  148. CORTISONE ACETATE [Concomitant]
     Active Substance: CORTISONE ACETATE
     Route: 048
  149. CORTISONE ACETATE [Concomitant]
     Active Substance: CORTISONE ACETATE
     Route: 061
  150. CORTISONE ACETATE [Concomitant]
     Active Substance: CORTISONE ACETATE
     Route: 058
  151. CORTISONE ACETATE [Concomitant]
     Active Substance: CORTISONE ACETATE
     Route: 058
  152. CORTISONE ACETATE [Concomitant]
     Active Substance: CORTISONE ACETATE
     Route: 058
  153. CORTISONE ACETATE [Concomitant]
     Active Substance: CORTISONE ACETATE
     Route: 003
  154. CORTISONE ACETATE [Concomitant]
     Active Substance: CORTISONE ACETATE
     Route: 003
  155. CORTISONE ACETATE [Concomitant]
     Active Substance: CORTISONE ACETATE
  156. CORTISONE ACETATE [Concomitant]
     Active Substance: CORTISONE ACETATE
     Route: 003
  157. CORTISONE ACETATE [Concomitant]
     Active Substance: CORTISONE ACETATE
     Route: 048
  158. CORTISONE ACETATE [Concomitant]
     Active Substance: CORTISONE ACETATE
     Route: 048
  159. CORTISONE ACETATE [Concomitant]
     Active Substance: CORTISONE ACETATE
     Route: 048
  160. CORTISONE ACETATE [Concomitant]
     Active Substance: CORTISONE ACETATE
     Route: 048
  161. CORTISONE ACETATE [Concomitant]
     Active Substance: CORTISONE ACETATE
     Route: 048
  162. CORTISONE ACETATE [Concomitant]
     Active Substance: CORTISONE ACETATE
     Route: 061
  163. CORTISONE ACETATE [Concomitant]
     Active Substance: CORTISONE ACETATE
  164. CORTISONE ACETATE [Concomitant]
     Active Substance: CORTISONE ACETATE
     Route: 048
  165. CORTISONE ACETATE [Concomitant]
     Active Substance: CORTISONE ACETATE
  166. CORTISONE ACETATE [Concomitant]
     Active Substance: CORTISONE ACETATE
     Route: 061
  167. CORTISONE ACETATE [Concomitant]
     Active Substance: CORTISONE ACETATE
     Route: 061
  168. CORTISONE ACETATE [Concomitant]
     Active Substance: CORTISONE ACETATE
  169. CORTISONE ACETATE [Concomitant]
     Active Substance: CORTISONE ACETATE
     Route: 048
  170. CORTISONE ACETATE [Concomitant]
     Active Substance: CORTISONE ACETATE
     Route: 003
  171. CORTISONE ACETATE [Concomitant]
     Active Substance: CORTISONE ACETATE
     Route: 048
  172. CORTISONE ACETATE [Concomitant]
     Active Substance: CORTISONE ACETATE
  173. COSENTYX [Concomitant]
     Active Substance: SECUKINUMAB
     Indication: Rheumatoid arthritis
  174. COSENTYX [Concomitant]
     Active Substance: SECUKINUMAB
     Indication: Psoriatic arthropathy
     Route: 005
  175. COSENTYX [Concomitant]
     Active Substance: SECUKINUMAB
  176. SECUKINUMAB [Concomitant]
     Active Substance: SECUKINUMAB
     Indication: Product used for unknown indication
  177. DESOXIMETASONE [Concomitant]
     Active Substance: DESOXIMETASONE
     Indication: Rheumatoid arthritis
     Route: 048
  178. DESOXIMETASONE [Concomitant]
     Active Substance: DESOXIMETASONE
     Route: 048
  179. DESOXIMETASONE [Concomitant]
     Active Substance: DESOXIMETASONE
     Route: 048
  180. DESOXIMETASONE [Concomitant]
     Active Substance: DESOXIMETASONE
     Route: 048
  181. DESOXIMETASONE [Concomitant]
     Active Substance: DESOXIMETASONE
     Route: 048
  182. DESOXIMETASONE [Concomitant]
     Active Substance: DESOXIMETASONE
     Route: 061
  183. DESOXIMETASONE [Concomitant]
     Active Substance: DESOXIMETASONE
     Route: 058
  184. DESOXIMETASONE [Concomitant]
     Active Substance: DESOXIMETASONE
     Route: 058
  185. DESOXIMETASONE [Concomitant]
     Active Substance: DESOXIMETASONE
  186. DESOXIMETASONE [Concomitant]
     Active Substance: DESOXIMETASONE
  187. DESOXIMETASONE [Concomitant]
     Active Substance: DESOXIMETASONE
  188. DESOXIMETASONE [Concomitant]
     Active Substance: DESOXIMETASONE
     Route: 061
  189. DESOXIMETASONE [Concomitant]
     Active Substance: DESOXIMETASONE
     Route: 061
  190. DESOXIMETASONE [Concomitant]
     Active Substance: DESOXIMETASONE
  191. DESOXIMETASONE [Concomitant]
     Active Substance: DESOXIMETASONE
  192. DESOXIMETASONE [Concomitant]
     Active Substance: DESOXIMETASONE
     Route: 048
  193. DESOXIMETASONE [Concomitant]
     Active Substance: DESOXIMETASONE
     Route: 003
  194. DESOXIMETASONE [Concomitant]
     Active Substance: DESOXIMETASONE
  195. DESOXIMETASONE [Concomitant]
     Active Substance: DESOXIMETASONE
     Route: 058
  196. DESOXIMETASONE [Concomitant]
     Active Substance: DESOXIMETASONE
     Route: 042
  197. DESOXIMETASONE [Concomitant]
     Active Substance: DESOXIMETASONE
     Route: 061
  198. DESOXIMETASONE [Concomitant]
     Active Substance: DESOXIMETASONE
     Route: 003
  199. DESOXIMETASONE [Concomitant]
     Active Substance: DESOXIMETASONE
     Route: 048
  200. DESOXIMETASONE [Concomitant]
     Active Substance: DESOXIMETASONE
     Route: 003
  201. DESOXIMETASONE [Concomitant]
     Active Substance: DESOXIMETASONE
  202. DESOXIMETASONE [Concomitant]
     Active Substance: DESOXIMETASONE
     Route: 003
  203. DESOXIMETASONE [Concomitant]
     Active Substance: DESOXIMETASONE
     Route: 048
  204. DESOXIMETASONE [Concomitant]
     Active Substance: DESOXIMETASONE
     Route: 048
  205. DICLOFENAC DIETHYLAMINE [Concomitant]
     Active Substance: DICLOFENAC DIETHYLAMINE
     Indication: Rheumatoid arthritis
  206. DICLOFENAC DIETHYLAMINE [Concomitant]
     Active Substance: DICLOFENAC DIETHYLAMINE
     Route: 061
  207. DICLOFENAC POTASSIUM [Concomitant]
     Active Substance: DICLOFENAC POTASSIUM
     Indication: Rheumatoid arthritis
  208. DICLOFENAC POTASSIUM [Concomitant]
     Active Substance: DICLOFENAC POTASSIUM
     Route: 058
  209. DICLOFENAC POTASSIUM [Concomitant]
     Active Substance: DICLOFENAC POTASSIUM
  210. DICLOFENAC POTASSIUM [Concomitant]
     Active Substance: DICLOFENAC POTASSIUM
     Route: 048
  211. DICLOFENAC POTASSIUM [Concomitant]
     Active Substance: DICLOFENAC POTASSIUM
     Route: 031
  212. DICLOFENAC POTASSIUM [Concomitant]
     Active Substance: DICLOFENAC POTASSIUM
     Route: 058
  213. DICLOFENAC POTASSIUM [Concomitant]
     Active Substance: DICLOFENAC POTASSIUM
  214. DICLOFENAC POTASSIUM [Concomitant]
     Active Substance: DICLOFENAC POTASSIUM
  215. DICLOFENAC POTASSIUM [Concomitant]
     Active Substance: DICLOFENAC POTASSIUM
     Route: 047
  216. DICLOFENAC POTASSIUM [Concomitant]
     Active Substance: DICLOFENAC POTASSIUM
  217. DICLOFENAC POTASSIUM [Concomitant]
     Active Substance: DICLOFENAC POTASSIUM
     Route: 048
  218. DICLOFENAC POTASSIUM [Concomitant]
     Active Substance: DICLOFENAC POTASSIUM
     Route: 058
  219. DICLOFENAC POTASSIUM [Concomitant]
     Active Substance: DICLOFENAC POTASSIUM
  220. DICLOFENAC POTASSIUM [Concomitant]
     Active Substance: DICLOFENAC POTASSIUM
     Route: 047
  221. DICLOFENAC POTASSIUM [Concomitant]
     Active Substance: DICLOFENAC POTASSIUM
  222. DICLOFENAC POTASSIUM [Concomitant]
     Active Substance: DICLOFENAC POTASSIUM
  223. DICLOFENAC POTASSIUM [Concomitant]
     Active Substance: DICLOFENAC POTASSIUM
  224. DICLOFENAC POTASSIUM [Concomitant]
     Active Substance: DICLOFENAC POTASSIUM
  225. DICLOFENAC POTASSIUM [Concomitant]
     Active Substance: DICLOFENAC POTASSIUM
     Route: 058
  226. DICLOFENAC POTASSIUM [Concomitant]
     Active Substance: DICLOFENAC POTASSIUM
     Route: 048
  227. DICLOFENAC POTASSIUM [Concomitant]
     Active Substance: DICLOFENAC POTASSIUM
     Route: 047
  228. DICLOFENAC POTASSIUM [Concomitant]
     Active Substance: DICLOFENAC POTASSIUM
     Route: 058
  229. DICLOFENAC POTASSIUM [Concomitant]
     Active Substance: DICLOFENAC POTASSIUM
     Route: 058
  230. DICLOFENAC POTASSIUM [Concomitant]
     Active Substance: DICLOFENAC POTASSIUM
  231. DICLOFENAC POTASSIUM [Concomitant]
     Active Substance: DICLOFENAC POTASSIUM
  232. DICLOFENAC SODIUM [Concomitant]
     Active Substance: DICLOFENAC SODIUM
     Indication: Product used for unknown indication
     Route: 058
  233. DICLOFENAC SODIUM [Concomitant]
     Active Substance: DICLOFENAC SODIUM
  234. DICLOFENAC SODIUM [Concomitant]
     Active Substance: DICLOFENAC SODIUM
  235. DICLOFENAC SODIUM [Concomitant]
     Active Substance: DICLOFENAC SODIUM
     Route: 058
  236. DICLOFENAC SODIUM [Concomitant]
     Active Substance: DICLOFENAC SODIUM
  237. DICLOFENAC SODIUM [Concomitant]
     Active Substance: DICLOFENAC SODIUM
     Route: 058
  238. DICLOFENAC SODIUM [Concomitant]
     Active Substance: DICLOFENAC SODIUM
     Route: 031
  239. DICLOFENAC SODIUM [Concomitant]
     Active Substance: DICLOFENAC SODIUM
     Route: 048
  240. DICLOFENAC SODIUM [Concomitant]
     Active Substance: DICLOFENAC SODIUM
  241. DICLOFENAC SODIUM [Concomitant]
     Active Substance: DICLOFENAC SODIUM
     Route: 058
  242. DICLOFENAC SODIUM [Concomitant]
     Active Substance: DICLOFENAC SODIUM
  243. DICLOFENAC SODIUM [Concomitant]
     Active Substance: DICLOFENAC SODIUM
  244. DICLOFENAC SODIUM [Concomitant]
     Active Substance: DICLOFENAC SODIUM
  245. DICLOFENAC SODIUM [Concomitant]
     Active Substance: DICLOFENAC SODIUM
     Route: 048
  246. DICLOFENAC SODIUM [Concomitant]
     Active Substance: DICLOFENAC SODIUM
     Route: 047
  247. DOXYCYCLINE HYCLATE [Concomitant]
     Active Substance: DOXYCYCLINE HYCLATE
     Indication: Product used for unknown indication
  248. DOXYCYCLINE HYCLATE [Concomitant]
     Active Substance: DOXYCYCLINE HYCLATE
     Route: 048
  249. DOXYCYCLINE HYCLATE [Concomitant]
     Active Substance: DOXYCYCLINE HYCLATE
  250. ENBREL [Concomitant]
     Active Substance: ETANERCEPT
     Indication: Rheumatoid arthritis
     Route: 058
  251. ENBREL [Concomitant]
     Active Substance: ETANERCEPT
     Indication: Psoriatic arthropathy
     Route: 058
  252. ENBREL [Concomitant]
     Active Substance: ETANERCEPT
     Indication: Psoriasis
  253. ENBREL [Concomitant]
     Active Substance: ETANERCEPT
     Route: 058
  254. ENBREL [Concomitant]
     Active Substance: ETANERCEPT
  255. ENBREL [Concomitant]
     Active Substance: ETANERCEPT
     Route: 058
  256. ENBREL [Concomitant]
     Active Substance: ETANERCEPT
     Route: 058
  257. ENBREL [Concomitant]
     Active Substance: ETANERCEPT
     Route: 058
  258. ENBREL [Concomitant]
     Active Substance: ETANERCEPT
     Route: 058
  259. ENBREL [Concomitant]
     Active Substance: ETANERCEPT
     Route: 058
  260. ENBREL [Concomitant]
     Active Substance: ETANERCEPT
     Route: 058
  261. ENBREL [Concomitant]
     Active Substance: ETANERCEPT
  262. ENBREL [Concomitant]
     Active Substance: ETANERCEPT
     Route: 048
  263. ENBREL [Concomitant]
     Active Substance: ETANERCEPT
     Route: 058
  264. ENBREL [Concomitant]
     Active Substance: ETANERCEPT
     Route: 058
  265. ENBREL [Concomitant]
     Active Substance: ETANERCEPT
     Route: 058
  266. ENBREL [Concomitant]
     Active Substance: ETANERCEPT
     Route: 058
  267. ENBREL [Concomitant]
     Active Substance: ETANERCEPT
     Route: 058
  268. ENBREL [Concomitant]
     Active Substance: ETANERCEPT
     Route: 058
  269. ENBREL [Concomitant]
     Active Substance: ETANERCEPT
     Route: 058
  270. ENBREL [Concomitant]
     Active Substance: ETANERCEPT
     Route: 048
  271. ENBREL [Concomitant]
     Active Substance: ETANERCEPT
     Route: 042
  272. ENBREL [Concomitant]
     Active Substance: ETANERCEPT
  273. ENBREL [Concomitant]
     Active Substance: ETANERCEPT
     Route: 048
  274. ERELZI [Concomitant]
     Active Substance: ETANERCEPT-SZZS
     Indication: Rheumatoid arthritis
     Route: 058
  275. ERELZI [Concomitant]
     Active Substance: ETANERCEPT-SZZS
     Indication: Psoriatic arthropathy
  276. ERELZI [Concomitant]
     Active Substance: ETANERCEPT-SZZS
     Route: 058
  277. ERELZI [Concomitant]
     Active Substance: ETANERCEPT-SZZS
  278. ERELZI [Concomitant]
     Active Substance: ETANERCEPT-SZZS
     Route: 058
  279. ERELZI [Concomitant]
     Active Substance: ETANERCEPT-SZZS
     Route: 058
  280. FLUMETHASONE PIVALATE [Concomitant]
     Active Substance: FLUMETHASONE PIVALATE
     Indication: Rheumatoid arthritis
     Route: 058
  281. FLUMETHASONE PIVALATE [Concomitant]
     Active Substance: FLUMETHASONE PIVALATE
  282. FLUMETHASONE PIVALATE [Concomitant]
     Active Substance: FLUMETHASONE PIVALATE
     Route: 058
  283. FLUMETHASONE PIVALATE [Concomitant]
     Active Substance: FLUMETHASONE PIVALATE
     Route: 058
  284. FLUMETHASONE PIVALATE [Concomitant]
     Active Substance: FLUMETHASONE PIVALATE
     Route: 003
  285. FLUMETHASONE PIVALATE [Concomitant]
     Active Substance: FLUMETHASONE PIVALATE
  286. FLUMETHASONE PIVALATE [Concomitant]
     Active Substance: FLUMETHASONE PIVALATE
     Route: 048
  287. FLUMETHASONE PIVALATE\NEOMYCIN SULFATE [Concomitant]
     Active Substance: FLUMETHASONE PIVALATE\NEOMYCIN SULFATE
     Indication: Rheumatoid arthritis
  288. FOLIC ACID [Concomitant]
     Active Substance: FOLIC ACID
     Indication: Rheumatoid arthritis
     Route: 058
  289. FOLIC ACID [Concomitant]
     Active Substance: FOLIC ACID
  290. FOLIC ACID [Concomitant]
     Active Substance: FOLIC ACID
  291. FOLIC ACID [Concomitant]
     Active Substance: FOLIC ACID
  292. FOLIC ACID [Concomitant]
     Active Substance: FOLIC ACID
     Route: 048
  293. FOLIC ACID [Concomitant]
     Active Substance: FOLIC ACID
     Route: 048
  294. FOLIC ACID [Concomitant]
     Active Substance: FOLIC ACID
     Route: 058
  295. FOLIC ACID [Concomitant]
     Active Substance: FOLIC ACID
     Route: 048
  296. FOLIC ACID [Concomitant]
     Active Substance: FOLIC ACID
     Route: 048
  297. FOLIC ACID [Concomitant]
     Active Substance: FOLIC ACID
     Route: 048
  298. FOLIC ACID [Concomitant]
     Active Substance: FOLIC ACID
  299. FOLIC ACID [Concomitant]
     Active Substance: FOLIC ACID
     Route: 048
  300. FOLIC ACID [Concomitant]
     Active Substance: FOLIC ACID
  301. FOLIC ACID [Concomitant]
     Active Substance: FOLIC ACID
  302. FOLIC ACID [Concomitant]
     Active Substance: FOLIC ACID
  303. FOLIC ACID [Concomitant]
     Active Substance: FOLIC ACID
  304. FOLIC ACID [Concomitant]
     Active Substance: FOLIC ACID
     Route: 048
  305. FOLIC ACID [Concomitant]
     Active Substance: FOLIC ACID
     Route: 048
  306. FOLIC ACID [Concomitant]
     Active Substance: FOLIC ACID
     Route: 058
  307. FOLIC ACID [Concomitant]
     Active Substance: FOLIC ACID
  308. FOLIC ACID [Concomitant]
     Active Substance: FOLIC ACID
  309. FOLIC ACID [Concomitant]
     Active Substance: FOLIC ACID
  310. FOSAMAX [Concomitant]
     Active Substance: ALENDRONATE SODIUM
     Indication: Rheumatoid arthritis
     Route: 058
  311. FOSAMAX [Concomitant]
     Active Substance: ALENDRONATE SODIUM
     Route: 048
  312. FOSAMAX [Concomitant]
     Active Substance: ALENDRONATE SODIUM
  313. GOLIMUMAB [Concomitant]
     Active Substance: GOLIMUMAB
     Indication: Rheumatoid arthritis
  314. GOLIMUMAB [Concomitant]
     Active Substance: GOLIMUMAB
     Indication: Psoriatic arthropathy
     Route: 058
  315. GOLIMUMAB [Concomitant]
     Active Substance: GOLIMUMAB
     Route: 042
  316. GOLIMUMAB [Concomitant]
     Active Substance: GOLIMUMAB
     Route: 052
  317. GOLIMUMAB [Concomitant]
     Active Substance: GOLIMUMAB
  318. HUMIRA [Concomitant]
     Active Substance: ADALIMUMAB
     Indication: Rheumatoid arthritis
     Route: 058
  319. HUMIRA [Concomitant]
     Active Substance: ADALIMUMAB
     Indication: Psoriatic arthropathy
     Route: 058
  320. HUMIRA [Concomitant]
     Active Substance: ADALIMUMAB
  321. HUMIRA [Concomitant]
     Active Substance: ADALIMUMAB
  322. HUMIRA [Concomitant]
     Active Substance: ADALIMUMAB
     Route: 058
  323. HUMIRA [Concomitant]
     Active Substance: ADALIMUMAB
     Route: 058
  324. HUMIRA [Concomitant]
     Active Substance: ADALIMUMAB
     Route: 058
  325. HUMIRA [Concomitant]
     Active Substance: ADALIMUMAB
     Route: 058
  326. HUMIRA [Concomitant]
     Active Substance: ADALIMUMAB
     Route: 058
  327. HUMIRA [Concomitant]
     Active Substance: ADALIMUMAB
     Route: 058
  328. HYDROCORTISONE BUTYRATE [Concomitant]
     Active Substance: HYDROCORTISONE BUTYRATE
     Indication: Rheumatoid arthritis
     Route: 058
  329. HYDROCORTISONE BUTYRATE [Concomitant]
     Active Substance: HYDROCORTISONE BUTYRATE
  330. HYDROCORTISONE BUTYRATE [Concomitant]
     Active Substance: HYDROCORTISONE BUTYRATE
     Route: 048
  331. HYDROCORTISONE BUTYRATE [Concomitant]
     Active Substance: HYDROCORTISONE BUTYRATE
     Route: 048
  332. HYDROCORTISONE BUTYRATE [Concomitant]
     Active Substance: HYDROCORTISONE BUTYRATE
  333. HYDROCORTISONE PROBUTATE [Concomitant]
     Active Substance: HYDROCORTISONE PROBUTATE
     Indication: Rheumatoid arthritis
     Route: 058
  334. HYDROCORTISONE SODIUM SUCCINATE [Concomitant]
     Active Substance: HYDROCORTISONE SODIUM SUCCINATE
     Indication: Rheumatoid arthritis
     Route: 048
  335. HYDROCORTISONE SODIUM SUCCINATE [Concomitant]
     Active Substance: HYDROCORTISONE SODIUM SUCCINATE
  336. HYDROCORTISONE SODIUM SUCCINATE [Concomitant]
     Active Substance: HYDROCORTISONE SODIUM SUCCINATE
  337. HYDROCORTISONE SODIUM SUCCINATE [Concomitant]
     Active Substance: HYDROCORTISONE SODIUM SUCCINATE
     Route: 048
  338. HYDROXYCHLOROQUINE SULFATE [Concomitant]
     Active Substance: HYDROXYCHLOROQUINE SULFATE
     Indication: Systemic lupus erythematosus
  339. HYDROXYCHLOROQUINE SULFATE [Concomitant]
     Active Substance: HYDROXYCHLOROQUINE SULFATE
     Indication: Rheumatoid arthritis
     Route: 048
  340. HYDROXYCHLOROQUINE SULFATE [Concomitant]
     Active Substance: HYDROXYCHLOROQUINE SULFATE
     Route: 058
  341. HYDROXYCHLOROQUINE SULFATE [Concomitant]
     Active Substance: HYDROXYCHLOROQUINE SULFATE
     Route: 048
  342. HYDROXYCHLOROQUINE SULFATE [Concomitant]
     Active Substance: HYDROXYCHLOROQUINE SULFATE
     Route: 048
  343. HYDROXYCHLOROQUINE SULFATE [Concomitant]
     Active Substance: HYDROXYCHLOROQUINE SULFATE
     Route: 048
  344. HYDROXYCHLOROQUINE SULFATE [Concomitant]
     Active Substance: HYDROXYCHLOROQUINE SULFATE
  345. HYDROXYCHLOROQUINE SULFATE [Concomitant]
     Active Substance: HYDROXYCHLOROQUINE SULFATE
  346. HYDROXYCHLOROQUINE SULFATE [Concomitant]
     Active Substance: HYDROXYCHLOROQUINE SULFATE
  347. HYDROXYCHLOROQUINE SULFATE [Concomitant]
     Active Substance: HYDROXYCHLOROQUINE SULFATE
     Route: 048
  348. HYDROXYCHLOROQUINE SULFATE [Concomitant]
     Active Substance: HYDROXYCHLOROQUINE SULFATE
  349. HYDROXYCHLOROQUINE SULFATE [Concomitant]
     Active Substance: HYDROXYCHLOROQUINE SULFATE
     Route: 048
  350. HYDROXYCHLOROQUINE SULFATE [Concomitant]
     Active Substance: HYDROXYCHLOROQUINE SULFATE
  351. HYDROXYCHLOROQUINE SULFATE [Concomitant]
     Active Substance: HYDROXYCHLOROQUINE SULFATE
     Route: 048
  352. HYDROXYCHLOROQUINE SULFATE [Concomitant]
     Active Substance: HYDROXYCHLOROQUINE SULFATE
     Route: 048
  353. HYDROXYCHLOROQUINE SULFATE [Concomitant]
     Active Substance: HYDROXYCHLOROQUINE SULFATE
     Route: 048
  354. HYDROXYCHLOROQUINE SULFATE [Concomitant]
     Active Substance: HYDROXYCHLOROQUINE SULFATE
  355. HYDROXYCHLOROQUINE SULFATE [Concomitant]
     Active Substance: HYDROXYCHLOROQUINE SULFATE
  356. HYDROXYCHLOROQUINE SULFATE [Concomitant]
     Active Substance: HYDROXYCHLOROQUINE SULFATE
  357. HYDROXYCHLOROQUINE SULFATE [Concomitant]
     Active Substance: HYDROXYCHLOROQUINE SULFATE
  358. HYDROXYCHLOROQUINE SULFATE [Concomitant]
     Active Substance: HYDROXYCHLOROQUINE SULFATE
     Route: 058
  359. INFLIXIMAB [Concomitant]
     Active Substance: INFLIXIMAB
     Indication: Rheumatoid arthritis
     Route: 042
  360. INFLIXIMAB [Concomitant]
     Active Substance: INFLIXIMAB
     Indication: Psoriatic arthropathy
     Route: 042
  361. INFLIXIMAB [Concomitant]
     Active Substance: INFLIXIMAB
  362. INFLIXIMAB [Concomitant]
     Active Substance: INFLIXIMAB
  363. INFLIXIMAB [Concomitant]
     Active Substance: INFLIXIMAB
  364. INFLIXIMAB [Concomitant]
     Active Substance: INFLIXIMAB
     Route: 042
  365. INFLIXIMAB [Concomitant]
     Active Substance: INFLIXIMAB
     Route: 042
  366. INFLIXIMAB [Concomitant]
     Active Substance: INFLIXIMAB
  367. INFLIXIMAB [Concomitant]
     Active Substance: INFLIXIMAB
     Route: 042
  368. INFLIXIMAB [Concomitant]
     Active Substance: INFLIXIMAB
  369. INFLIXIMAB [Concomitant]
     Active Substance: INFLIXIMAB
     Route: 042
  370. INFLIXIMAB [Concomitant]
     Active Substance: INFLIXIMAB
     Route: 016
  371. ISOPROPYL ALCOHOL [Concomitant]
     Active Substance: ISOPROPYL ALCOHOL
     Indication: Product used for unknown indication
     Route: 061
  372. ISOPROPYL ALCOHOL [Concomitant]
     Active Substance: ISOPROPYL ALCOHOL
     Route: 061
  373. ISOPROPYL ALCOHOL [Concomitant]
     Active Substance: ISOPROPYL ALCOHOL
     Route: 061
  374. LEFLUNOMIDE [Concomitant]
     Active Substance: LEFLUNOMIDE
     Indication: Rheumatoid arthritis
     Route: 048
  375. LEFLUNOMIDE [Concomitant]
     Active Substance: LEFLUNOMIDE
     Route: 048
  376. LEFLUNOMIDE [Concomitant]
     Active Substance: LEFLUNOMIDE
  377. METHOTREXATE [Concomitant]
     Active Substance: METHOTREXATE
     Indication: Rheumatoid arthritis
     Route: 055
  378. METHOTREXATE [Concomitant]
     Active Substance: METHOTREXATE
     Route: 048
  379. METHOTREXATE [Concomitant]
     Active Substance: METHOTREXATE
     Route: 048
  380. METHOTREXATE [Concomitant]
     Active Substance: METHOTREXATE
     Route: 058
  381. METHOTREXATE [Concomitant]
     Active Substance: METHOTREXATE
     Route: 013
  382. METHOTREXATE [Concomitant]
     Active Substance: METHOTREXATE
     Route: 048
  383. METHOTREXATE [Concomitant]
     Active Substance: METHOTREXATE
     Route: 013
  384. METHOTREXATE [Concomitant]
     Active Substance: METHOTREXATE
  385. METHOTREXATE [Concomitant]
     Active Substance: METHOTREXATE
     Route: 048
  386. METHOTREXATE [Concomitant]
     Active Substance: METHOTREXATE
     Route: 048
  387. METHOTREXATE [Concomitant]
     Active Substance: METHOTREXATE
     Route: 048
  388. METHOTREXATE [Concomitant]
     Active Substance: METHOTREXATE
  389. METHOTREXATE [Concomitant]
     Active Substance: METHOTREXATE
     Route: 048
  390. METHOTREXATE [Concomitant]
     Active Substance: METHOTREXATE
     Route: 048
  391. METHOTREXATE [Concomitant]
     Active Substance: METHOTREXATE
     Route: 048
  392. METHOTREXATE [Concomitant]
     Active Substance: METHOTREXATE
     Route: 048
  393. METHOTREXATE [Concomitant]
     Active Substance: METHOTREXATE
     Route: 048
  394. METHOTREXATE [Concomitant]
     Active Substance: METHOTREXATE
     Route: 048
  395. METHOTREXATE [Concomitant]
     Active Substance: METHOTREXATE
     Route: 058
  396. METHOTREXATE [Concomitant]
     Active Substance: METHOTREXATE
  397. METHOTREXATE [Concomitant]
     Active Substance: METHOTREXATE
     Route: 058
  398. METHOTREXATE [Concomitant]
     Active Substance: METHOTREXATE
     Route: 013
  399. METHOTREXATE [Concomitant]
     Active Substance: METHOTREXATE
     Route: 037
  400. METHOTREXATE [Concomitant]
     Active Substance: METHOTREXATE
  401. METHOTREXATE [Concomitant]
     Active Substance: METHOTREXATE
  402. METHOTREXATE [Concomitant]
     Active Substance: METHOTREXATE
     Route: 048
  403. METHOTREXATE [Concomitant]
     Active Substance: METHOTREXATE
     Route: 048
  404. METHOTREXATE [Concomitant]
     Active Substance: METHOTREXATE
     Route: 013
  405. METHOTREXATE [Concomitant]
     Active Substance: METHOTREXATE
     Route: 058
  406. METHOTREXATE [Concomitant]
     Active Substance: METHOTREXATE
  407. METHOTREXATE [Concomitant]
     Active Substance: METHOTREXATE
     Route: 048
  408. METHOTREXATE [Concomitant]
     Active Substance: METHOTREXATE
  409. METHOTREXATE [Concomitant]
     Active Substance: METHOTREXATE
     Route: 058
  410. METHOTREXATE [Concomitant]
     Active Substance: METHOTREXATE
     Route: 058
  411. METHOTREXATE [Concomitant]
     Active Substance: METHOTREXATE
     Route: 058
  412. METHOTREXATE [Concomitant]
     Active Substance: METHOTREXATE
     Route: 048
  413. METHOTREXATE [Concomitant]
     Active Substance: METHOTREXATE
     Route: 048
  414. METHOTREXATE [Concomitant]
     Active Substance: METHOTREXATE
     Route: 048
  415. METHOTREXATE [Concomitant]
     Active Substance: METHOTREXATE
     Route: 048
  416. METHOTREXATE [Concomitant]
     Active Substance: METHOTREXATE
     Route: 048
  417. METHOTREXATE [Concomitant]
     Active Substance: METHOTREXATE
  418. METHOTREXATE [Concomitant]
     Active Substance: METHOTREXATE
     Route: 048
  419. METHOTREXATE [Concomitant]
     Active Substance: METHOTREXATE
     Route: 048
  420. METHOTREXATE [Concomitant]
     Active Substance: METHOTREXATE
     Route: 058
  421. METHOTREXATE [Concomitant]
     Active Substance: METHOTREXATE
     Route: 048
  422. METHOTREXATE [Concomitant]
     Active Substance: METHOTREXATE
     Route: 048
  423. METHOTREXATE [Concomitant]
     Active Substance: METHOTREXATE
     Route: 048
  424. METHOTREXATE [Concomitant]
     Active Substance: METHOTREXATE
  425. METHOTREXATE [Concomitant]
     Active Substance: METHOTREXATE
     Route: 013
  426. METHOTREXATE [Concomitant]
     Active Substance: METHOTREXATE
     Route: 048
  427. METHOTREXATE [Concomitant]
     Active Substance: METHOTREXATE
     Route: 048
  428. METHOTREXATE [Concomitant]
     Active Substance: METHOTREXATE
     Route: 058
  429. METHOTREXATE [Concomitant]
     Active Substance: METHOTREXATE
  430. METHOTREXATE [Concomitant]
     Active Substance: METHOTREXATE
     Route: 058
  431. METHOTREXATE [Concomitant]
     Active Substance: METHOTREXATE
  432. METHOTREXATE [Concomitant]
     Active Substance: METHOTREXATE
     Route: 037
  433. METHOTREXATE [Concomitant]
     Active Substance: METHOTREXATE
     Route: 058
  434. METHOTREXATE [Concomitant]
     Active Substance: METHOTREXATE
  435. METHOTREXATE [Concomitant]
     Active Substance: METHOTREXATE
     Route: 055
  436. MYCOPHENOLATE MOFETIL HYDROCHLORIDE [Concomitant]
     Active Substance: MYCOPHENOLATE MOFETIL HYDROCHLORIDE
     Indication: Rheumatoid arthritis
  437. NAPROXEN SODIUM [Concomitant]
     Active Substance: NAPROXEN SODIUM
     Indication: Rheumatoid arthritis
  438. NAPROXEN SODIUM [Concomitant]
     Active Substance: NAPROXEN SODIUM
  439. NAPROXEN SODIUM [Concomitant]
     Active Substance: NAPROXEN SODIUM
  440. NAPROXEN SODIUM [Concomitant]
     Active Substance: NAPROXEN SODIUM
  441. NEOMYCIN SULFATE [Concomitant]
     Active Substance: NEOMYCIN SULFATE
     Indication: Product used for unknown indication
  442. OXYCODONE HYDROCHLORIDE [Concomitant]
     Active Substance: OXYCODONE HYDROCHLORIDE
     Indication: Psoriatic arthropathy
  443. OXYCODONE HYDROCHLORIDE [Concomitant]
     Active Substance: OXYCODONE HYDROCHLORIDE
     Route: 048
  444. OXYCODONE HYDROCHLORIDE [Concomitant]
     Active Substance: OXYCODONE HYDROCHLORIDE
     Route: 048
  445. OXYCODONE TEREPHTHALATE [Concomitant]
     Active Substance: OXYCODONE TEREPHTHALATE
     Indication: Product used for unknown indication
     Route: 016
  446. OXYCODONE TEREPHTHALATE [Concomitant]
     Active Substance: OXYCODONE TEREPHTHALATE
  447. PANTOPRAZOLE SODIUM ANHYDROUS [Concomitant]
     Active Substance: PANTOPRAZOLE SODIUM ANHYDROUS
     Indication: Product used for unknown indication
  448. PERIOGARD [Concomitant]
     Active Substance: CHLORHEXIDINE GLUCONATE
     Indication: Product used for unknown indication
     Route: 002
  449. PERIOGARD [Concomitant]
     Active Substance: CHLORHEXIDINE GLUCONATE
     Route: 048
  450. PERIOGARD [Concomitant]
     Active Substance: CHLORHEXIDINE GLUCONATE
     Route: 016
  451. PERIOGARD [Concomitant]
     Active Substance: CHLORHEXIDINE GLUCONATE
  452. PHTHALYLSULFATHIAZOLE [Concomitant]
     Active Substance: PHTHALYLSULFATHIAZOLE
     Indication: Rheumatoid arthritis
     Route: 048
  453. PHTHALYLSULFATHIAZOLE [Concomitant]
     Active Substance: PHTHALYLSULFATHIAZOLE
  454. PHTHALYLSULFATHIAZOLE [Concomitant]
     Active Substance: PHTHALYLSULFATHIAZOLE
     Route: 048
  455. PHTHALYLSULFATHIAZOLE [Concomitant]
     Active Substance: PHTHALYLSULFATHIAZOLE
     Route: 048
  456. PHTHALYLSULFATHIAZOLE [Concomitant]
     Active Substance: PHTHALYLSULFATHIAZOLE
     Route: 016
  457. PHTHALYLSULFATHIAZOLE [Concomitant]
     Active Substance: PHTHALYLSULFATHIAZOLE
     Route: 048
  458. PHTHALYLSULFATHIAZOLE [Concomitant]
     Active Substance: PHTHALYLSULFATHIAZOLE
  459. PHTHALYLSULFATHIAZOLE [Concomitant]
     Active Substance: PHTHALYLSULFATHIAZOLE
     Route: 048
  460. PHTHALYLSULFATHIAZOLE [Concomitant]
     Active Substance: PHTHALYLSULFATHIAZOLE
     Route: 048
  461. PHTHALYLSULFATHIAZOLE [Concomitant]
     Active Substance: PHTHALYLSULFATHIAZOLE
     Route: 042
  462. PHTHALYLSULFATHIAZOLE [Concomitant]
     Active Substance: PHTHALYLSULFATHIAZOLE
  463. PHTHALYLSULFATHIAZOLE [Concomitant]
     Active Substance: PHTHALYLSULFATHIAZOLE
     Route: 048
  464. PREDNISONE [Concomitant]
     Active Substance: PREDNISONE
     Indication: Rheumatoid arthritis
     Route: 048
  465. PREDNISONE [Concomitant]
     Active Substance: PREDNISONE
     Indication: Psoriatic arthropathy
     Route: 048
  466. PREDNISONE [Concomitant]
     Active Substance: PREDNISONE
     Indication: Condition aggravated
     Route: 048
  467. PREDNISONE [Concomitant]
     Active Substance: PREDNISONE
  468. PREDNISONE [Concomitant]
     Active Substance: PREDNISONE
     Route: 042
  469. PREDNISONE [Concomitant]
     Active Substance: PREDNISONE
  470. PREDNISONE [Concomitant]
     Active Substance: PREDNISONE
     Route: 048
  471. PREDNISONE [Concomitant]
     Active Substance: PREDNISONE
  472. PREDNISONE [Concomitant]
     Active Substance: PREDNISONE
  473. PREDNISONE [Concomitant]
     Active Substance: PREDNISONE
     Route: 048
  474. PREDNISONE [Concomitant]
     Active Substance: PREDNISONE
  475. PREGABALIN [Concomitant]
     Active Substance: PREGABALIN
     Indication: Product used for unknown indication
  476. PREGABALIN [Concomitant]
     Active Substance: PREGABALIN
  477. PSEUDOEPHEDRINE HYDROCHLORIDE [Concomitant]
     Active Substance: PSEUDOEPHEDRINE HYDROCHLORIDE
     Indication: Rheumatoid arthritis
  478. PSEUDOEPHEDRINE HYDROCHLORIDE [Concomitant]
     Active Substance: PSEUDOEPHEDRINE HYDROCHLORIDE
  479. PSEUDOEPHEDRINE HYDROCHLORIDE [Concomitant]
     Active Substance: PSEUDOEPHEDRINE HYDROCHLORIDE
  480. PSEUDOEPHEDRINE HYDROCHLORIDE [Concomitant]
     Active Substance: PSEUDOEPHEDRINE HYDROCHLORIDE
  481. PSEUDOEPHEDRINE HYDROCHLORIDE [Concomitant]
     Active Substance: PSEUDOEPHEDRINE HYDROCHLORIDE
  482. PSEUDOEPHEDRINE HYDROCHLORIDE [Concomitant]
     Active Substance: PSEUDOEPHEDRINE HYDROCHLORIDE
     Route: 048
  483. CETIRIZINE HYDROCHLORIDE\PSEUDOEPHEDRINE HYDROCHLORIDE [Concomitant]
     Active Substance: CETIRIZINE HYDROCHLORIDE\PSEUDOEPHEDRINE HYDROCHLORIDE
     Indication: Rheumatoid arthritis
  484. CETIRIZINE HYDROCHLORIDE\PSEUDOEPHEDRINE HYDROCHLORIDE [Concomitant]
     Active Substance: CETIRIZINE HYDROCHLORIDE\PSEUDOEPHEDRINE HYDROCHLORIDE
  485. CETIRIZINE HYDROCHLORIDE\PSEUDOEPHEDRINE HYDROCHLORIDE [Concomitant]
     Active Substance: CETIRIZINE HYDROCHLORIDE\PSEUDOEPHEDRINE HYDROCHLORIDE
  486. CETIRIZINE HYDROCHLORIDE\PSEUDOEPHEDRINE HYDROCHLORIDE [Concomitant]
     Active Substance: CETIRIZINE HYDROCHLORIDE\PSEUDOEPHEDRINE HYDROCHLORIDE
  487. CETIRIZINE HYDROCHLORIDE\PSEUDOEPHEDRINE HYDROCHLORIDE [Concomitant]
     Active Substance: CETIRIZINE HYDROCHLORIDE\PSEUDOEPHEDRINE HYDROCHLORIDE
     Route: 048
  488. CETIRIZINE HYDROCHLORIDE\PSEUDOEPHEDRINE HYDROCHLORIDE [Concomitant]
     Active Substance: CETIRIZINE HYDROCHLORIDE\PSEUDOEPHEDRINE HYDROCHLORIDE
     Route: 048
  489. CETIRIZINE HYDROCHLORIDE\PSEUDOEPHEDRINE HYDROCHLORIDE [Concomitant]
     Active Substance: CETIRIZINE HYDROCHLORIDE\PSEUDOEPHEDRINE HYDROCHLORIDE
     Route: 048
  490. CETIRIZINE HYDROCHLORIDE [Concomitant]
     Active Substance: CETIRIZINE HYDROCHLORIDE
     Indication: Rheumatoid arthritis
     Route: 048
  491. CETIRIZINE HYDROCHLORIDE [Concomitant]
     Active Substance: CETIRIZINE HYDROCHLORIDE
  492. CETIRIZINE HYDROCHLORIDE [Concomitant]
     Active Substance: CETIRIZINE HYDROCHLORIDE
  493. RITUXIMAB [Concomitant]
     Active Substance: RITUXIMAB
     Indication: Rheumatoid arthritis
     Route: 042
  494. RITUXIMAB [Concomitant]
     Active Substance: RITUXIMAB
     Route: 058
  495. RITUXIMAB [Concomitant]
     Active Substance: RITUXIMAB
     Route: 042
  496. RITUXIMAB [Concomitant]
     Active Substance: RITUXIMAB
     Route: 042
  497. RITUXIMAB [Concomitant]
     Active Substance: RITUXIMAB
     Route: 058
  498. RITUXIMAB [Concomitant]
     Active Substance: RITUXIMAB
     Route: 042
  499. RITUXIMAB [Concomitant]
     Active Substance: RITUXIMAB
     Route: 041
  500. RITUXIMAB [Concomitant]
     Active Substance: RITUXIMAB
     Route: 042
  501. SULFASALAZINE [Concomitant]
     Active Substance: SULFASALAZINE
     Indication: Rheumatoid arthritis
  502. SULFASALAZINE [Concomitant]
     Active Substance: SULFASALAZINE
     Route: 048
  503. SULFASALAZINE [Concomitant]
     Active Substance: SULFASALAZINE
     Route: 048
  504. SULFASALAZINE [Concomitant]
     Active Substance: SULFASALAZINE
  505. SULFASALAZINE [Concomitant]
     Active Substance: SULFASALAZINE
     Route: 048
  506. SULFASALAZINE [Concomitant]
     Active Substance: SULFASALAZINE
  507. SULFASALAZINE [Concomitant]
     Active Substance: SULFASALAZINE
     Route: 048
  508. SULFASALAZINE [Concomitant]
     Active Substance: SULFASALAZINE
     Route: 048
  509. SULFASALAZINE [Concomitant]
     Active Substance: SULFASALAZINE
  510. SULFASALAZINE [Concomitant]
     Active Substance: SULFASALAZINE
     Route: 048
  511. SULFASALAZINE [Concomitant]
     Active Substance: SULFASALAZINE
     Route: 048
  512. SULFASALAZINE [Concomitant]
     Active Substance: SULFASALAZINE
     Route: 048
  513. SULFASALAZINE [Concomitant]
     Active Substance: SULFASALAZINE
  514. SULFASALAZINE [Concomitant]
     Active Substance: SULFASALAZINE
  515. SIMPONI [Concomitant]
     Active Substance: GOLIMUMAB
     Indication: Rheumatoid arthritis
     Route: 042
  516. SIMPONI [Concomitant]
     Active Substance: GOLIMUMAB
     Indication: Psoriatic arthropathy
     Route: 052
  517. SIMPONI [Concomitant]
     Active Substance: GOLIMUMAB
     Route: 058
  518. SIMPONI [Concomitant]
     Active Substance: GOLIMUMAB
     Route: 058
  519. SIMPONI [Concomitant]
     Active Substance: GOLIMUMAB
  520. SULFAMETHOXAZOLE [Concomitant]
     Active Substance: SULFAMETHOXAZOLE
     Indication: Rheumatoid arthritis
     Route: 042
  521. SULFAMETHOXAZOLE [Concomitant]
     Active Substance: SULFAMETHOXAZOLE
     Indication: Systemic lupus erythematosus
  522. SULFAMETHOXAZOLE [Concomitant]
     Active Substance: SULFAMETHOXAZOLE
     Route: 048
  523. SULFAMETHOXAZOLE [Concomitant]
     Active Substance: SULFAMETHOXAZOLE
  524. SULFAMETHOXAZOLE [Concomitant]
     Active Substance: SULFAMETHOXAZOLE
     Route: 048
  525. SULFAMETHOXAZOLE [Concomitant]
     Active Substance: SULFAMETHOXAZOLE
     Route: 016
  526. SULFAMETHOXAZOLE [Concomitant]
     Active Substance: SULFAMETHOXAZOLE
     Route: 048
  527. SULFAMETHOXAZOLE [Concomitant]
     Active Substance: SULFAMETHOXAZOLE
  528. SULFAMETHOXAZOLE [Concomitant]
     Active Substance: SULFAMETHOXAZOLE
     Route: 048
  529. SULFAMETHOXAZOLE [Concomitant]
     Active Substance: SULFAMETHOXAZOLE
     Route: 048
  530. SULFAMETHOXAZOLE [Concomitant]
     Active Substance: SULFAMETHOXAZOLE
     Route: 048
  531. SULFAMETHOXAZOLE [Concomitant]
     Active Substance: SULFAMETHOXAZOLE
     Route: 048
  532. SULFAMETHOXAZOLE\TRIMETHOPRIM [Concomitant]
     Active Substance: SULFAMETHOXAZOLE\TRIMETHOPRIM
     Indication: Product used for unknown indication
  533. SULFASALAZINE [Concomitant]
     Active Substance: SULFASALAZINE
     Indication: Rheumatoid arthritis
     Route: 048
  534. SULFASALAZINE [Concomitant]
     Active Substance: SULFASALAZINE
     Route: 048
  535. SULFASALAZINE [Concomitant]
     Active Substance: SULFASALAZINE
     Route: 048
  536. SULFASALAZINE [Concomitant]
     Active Substance: SULFASALAZINE
  537. SULFASALAZINE [Concomitant]
     Active Substance: SULFASALAZINE
     Route: 048
  538. SULFASALAZINE [Concomitant]
     Active Substance: SULFASALAZINE
  539. SULFASALAZINE [Concomitant]
     Active Substance: SULFASALAZINE
     Route: 048
  540. SULFASALAZINE [Concomitant]
     Active Substance: SULFASALAZINE
     Route: 048
  541. SULFASALAZINE [Concomitant]
     Active Substance: SULFASALAZINE
     Route: 048
  542. SULFASALAZINE [Concomitant]
     Active Substance: SULFASALAZINE
     Route: 048
  543. SULFASALAZINE [Concomitant]
     Active Substance: SULFASALAZINE
     Route: 048
  544. SULFASALAZINE [Concomitant]
     Active Substance: SULFASALAZINE
  545. SULFASALAZINE [Concomitant]
     Active Substance: SULFASALAZINE
  546. SULFASALAZINE [Concomitant]
     Active Substance: SULFASALAZINE
     Route: 048
  547. SULFASALAZINE [Concomitant]
     Active Substance: SULFASALAZINE
     Route: 058
  548. SULFASALAZINE [Concomitant]
     Active Substance: SULFASALAZINE
     Route: 058
  549. SULFASALAZINE [Concomitant]
     Active Substance: SULFASALAZINE
     Route: 048
  550. SULFASALAZINE [Concomitant]
     Active Substance: SULFASALAZINE
     Route: 048
  551. SULFASALAZINE [Concomitant]
     Active Substance: SULFASALAZINE
     Route: 048
  552. SULFASALAZINE [Concomitant]
     Active Substance: SULFASALAZINE
  553. SULFASALAZINE [Concomitant]
     Active Substance: SULFASALAZINE
  554. SULFASALAZINE [Concomitant]
     Active Substance: SULFASALAZINE
     Route: 048
  555. SULFASALAZINE [Concomitant]
     Active Substance: SULFASALAZINE
     Route: 048
  556. SULFASALAZINE [Concomitant]
     Active Substance: SULFASALAZINE
  557. SULFASALAZINE [Concomitant]
     Active Substance: SULFASALAZINE
     Route: 048
  558. SULFASALAZINE [Concomitant]
     Active Substance: SULFASALAZINE
     Route: 048
  559. SULFASALAZINE [Concomitant]
     Active Substance: SULFASALAZINE
     Route: 048
  560. SULFASALAZINE [Concomitant]
     Active Substance: SULFASALAZINE
  561. TOCILIZUMAB [Concomitant]
     Active Substance: TOCILIZUMAB
     Indication: Rheumatoid arthritis
     Route: 058
  562. TOCILIZUMAB [Concomitant]
     Active Substance: TOCILIZUMAB
  563. TOFACITINIB CITRATE [Concomitant]
     Active Substance: TOFACITINIB CITRATE
     Indication: Rheumatoid arthritis
  564. TOFACITINIB CITRATE [Concomitant]
     Active Substance: TOFACITINIB CITRATE
     Indication: Psoriatic arthropathy
     Route: 048
  565. TOFACITINIB CITRATE [Concomitant]
     Active Substance: TOFACITINIB CITRATE
     Route: 058
  566. TOFACITINIB CITRATE [Concomitant]
     Active Substance: TOFACITINIB CITRATE
  567. TOFACITINIB CITRATE [Concomitant]
     Active Substance: TOFACITINIB CITRATE
  568. TOFACITINIB CITRATE [Concomitant]
     Active Substance: TOFACITINIB CITRATE
     Route: 048
  569. TRAMADOL HYDROCHLORIDE [Concomitant]
     Active Substance: TRAMADOL HYDROCHLORIDE
     Indication: Product used for unknown indication
  570. TUMS [Concomitant]
     Active Substance: CALCIUM CARBONATE
     Indication: Product used for unknown indication
  571. USTEKINUMAB [Concomitant]
     Active Substance: USTEKINUMAB
     Indication: Psoriatic arthropathy
     Route: 058
  572. USTEKINUMAB [Concomitant]
     Active Substance: USTEKINUMAB
  573. USTEKINUMAB [Concomitant]
     Active Substance: USTEKINUMAB
     Route: 058
  574. USTEKINUMAB [Concomitant]
     Active Substance: USTEKINUMAB
  575. USTEKINUMAB [Concomitant]
     Active Substance: USTEKINUMAB
     Route: 042
  576. USTEKINUMAB [Concomitant]
     Active Substance: USTEKINUMAB
     Route: 058
  577. USTEKINUMAB [Concomitant]
     Active Substance: USTEKINUMAB
     Route: 058
  578. VITAMIN C [Concomitant]
     Active Substance: ASCORBIC ACID
     Indication: Product used for unknown indication
     Route: 016
  579. VITAMIN C [Concomitant]
     Active Substance: ASCORBIC ACID
  580. VITAMIN C [Concomitant]
     Active Substance: ASCORBIC ACID
     Route: 016
  581. VITAMIN C [Concomitant]
     Active Substance: ASCORBIC ACID
  582. CHOLECALCIFEROL [Concomitant]
     Active Substance: CHOLECALCIFEROL
     Indication: Product used for unknown indication
  583. CHOLECALCIFEROL [Concomitant]
     Active Substance: CHOLECALCIFEROL
  584. PREDNISONE [Concomitant]
     Active Substance: PREDNISONE
     Indication: Rheumatoid arthritis
     Route: 048
  585. CALCIUM CARBONATE [Concomitant]
     Active Substance: CALCIUM CARBONATE
     Indication: Product used for unknown indication
  586. CELEBREX [Concomitant]
     Active Substance: CELECOXIB
     Indication: Product used for unknown indication
  587. CELEBREX [Concomitant]
     Active Substance: CELECOXIB
     Route: 048
  588. LYRICA [Concomitant]
     Active Substance: PREGABALIN
     Indication: Product used for unknown indication
  589. PERCOCET [Concomitant]
     Active Substance: ACETAMINOPHEN\OXYCODONE HYDROCHLORIDE
     Indication: Product used for unknown indication
  590. CETIRIZINE HYDROCHLORIDE [Concomitant]
     Active Substance: CETIRIZINE HYDROCHLORIDE
     Indication: Rheumatoid arthritis
     Route: 048
  591. REMICADE [Concomitant]
     Active Substance: INFLIXIMAB
     Indication: Rheumatoid arthritis
     Route: 042
  592. REMICADE [Concomitant]
     Active Substance: INFLIXIMAB
     Route: 042
  593. REMICADE [Concomitant]
     Active Substance: INFLIXIMAB
  594. REMICADE [Concomitant]
     Active Substance: INFLIXIMAB
  595. STELARA [Concomitant]
     Active Substance: USTEKINUMAB
     Indication: Product used for unknown indication
     Route: 058
  596. STELARA [Concomitant]
     Active Substance: USTEKINUMAB
     Route: 058
  597. STELARA [Concomitant]
     Active Substance: USTEKINUMAB
     Route: 042
  598. STELARA [Concomitant]
     Active Substance: USTEKINUMAB
     Route: 058
  599. STELARA [Concomitant]
     Active Substance: USTEKINUMAB
     Route: 058
  600. STELARA [Concomitant]
     Active Substance: USTEKINUMAB
     Route: 058
  601. STELARA [Concomitant]
     Active Substance: USTEKINUMAB
     Route: 042
  602. DICLOFENAC DIETHYLAMINE [Concomitant]
     Active Substance: DICLOFENAC DIETHYLAMINE
     Indication: Product used for unknown indication
  603. DICLOFENAC DIETHYLAMINE [Concomitant]
     Active Substance: DICLOFENAC DIETHYLAMINE
     Route: 048
  604. DICLOFENAC DIETHYLAMINE [Concomitant]
     Active Substance: DICLOFENAC DIETHYLAMINE
  605. DICLOFENAC DIETHYLAMINE [Concomitant]
     Active Substance: DICLOFENAC DIETHYLAMINE
  606. XELJANZ [Concomitant]
     Active Substance: TOFACITINIB CITRATE
     Indication: Rheumatoid arthritis
     Route: 048
  607. CHLORHEXIDINE [Concomitant]
     Active Substance: CHLORHEXIDINE
     Indication: Product used for unknown indication
     Route: 061
  608. CHLORHEXIDINE [Concomitant]
     Active Substance: CHLORHEXIDINE
     Route: 002
  609. CHLORHEXIDINE [Concomitant]
     Active Substance: CHLORHEXIDINE
     Route: 048
  610. HYDROCORTISONE [Concomitant]
     Active Substance: HYDROCORTISONE
     Indication: Rheumatoid arthritis
     Route: 003
  611. HYDROCORTISONE [Concomitant]
     Active Substance: HYDROCORTISONE
     Route: 058
  612. HYDROCORTISONE [Concomitant]
     Active Substance: HYDROCORTISONE
     Route: 061
  613. HYDROCORTISONE [Concomitant]
     Active Substance: HYDROCORTISONE
  614. HYDROCORTISONE [Concomitant]
     Active Substance: HYDROCORTISONE
     Route: 048
  615. HYDROXYCHLOROQUINE [Concomitant]
     Active Substance: HYDROXYCHLOROQUINE
     Indication: Rheumatoid arthritis
  616. HYDROXYCHLOROQUINE [Concomitant]
     Active Substance: HYDROXYCHLOROQUINE
     Route: 048
  617. HYDROXYCHLOROQUINE [Concomitant]
     Active Substance: HYDROXYCHLOROQUINE
     Route: 048
  618. HYDROXYCHLOROQUINE [Concomitant]
     Active Substance: HYDROXYCHLOROQUINE
     Route: 048
  619. HYDROXYCHLOROQUINE [Concomitant]
     Active Substance: HYDROXYCHLOROQUINE
  620. HYDROXYCHLOROQUINE [Concomitant]
     Active Substance: HYDROXYCHLOROQUINE
  621. NEOMYCIN [Concomitant]
     Active Substance: NEOMYCIN
     Indication: Product used for unknown indication
  622. OTEZLA [Concomitant]
     Active Substance: APREMILAST
     Indication: Product used for unknown indication
     Route: 048
  623. OTEZLA [Concomitant]
     Active Substance: APREMILAST
     Route: 048
  624. OXYCODONE [Concomitant]
     Active Substance: OXYCODONE
     Indication: Product used for unknown indication
  625. SULFASALAZINE [Concomitant]
     Active Substance: SULFASALAZINE
     Indication: Rheumatoid arthritis
  626. SULFASALAZINE [Concomitant]
     Active Substance: SULFASALAZINE
  627. SULFASALAZINE [Concomitant]
     Active Substance: SULFASALAZINE
     Route: 048
  628. SULFASALAZINE [Concomitant]
     Active Substance: SULFASALAZINE
     Route: 048
  629. SULFASALAZINE [Concomitant]
     Active Substance: SULFASALAZINE
  630. SULFASALAZINE [Concomitant]
     Active Substance: SULFASALAZINE
     Route: 048
  631. SULFASALAZINE [Concomitant]
     Active Substance: SULFASALAZINE
     Route: 048
  632. SULFASALAZINE [Concomitant]
     Active Substance: SULFASALAZINE
     Route: 048
  633. TOFACITINIB [Concomitant]
     Active Substance: TOFACITINIB
     Indication: Rheumatoid arthritis
  634. ACETAMINOPHEN AND CODEINE [Concomitant]
     Active Substance: ACETAMINOPHEN\CODEINE PHOSPHATE
     Indication: Pyrexia
  635. ALENDRONATE SODIUM [Concomitant]
     Active Substance: ALENDRONATE SODIUM
     Indication: Rheumatoid arthritis
  636. ALENDRONATE SODIUM [Concomitant]
     Active Substance: ALENDRONATE SODIUM
     Route: 048
  637. ALENDRONATE SODIUM [Concomitant]
     Active Substance: ALENDRONATE SODIUM
     Route: 048
  638. ALENDRONATE SODIUM [Concomitant]
     Active Substance: ALENDRONATE SODIUM
  639. ALENDRONATE SODIUM [Concomitant]
     Active Substance: ALENDRONATE SODIUM
     Route: 048
  640. ALENDRONATE SODIUM [Concomitant]
     Active Substance: ALENDRONATE SODIUM
     Route: 048
  641. ALENDRONATE SODIUM [Concomitant]
     Active Substance: ALENDRONATE SODIUM
     Route: 058
  642. ALENDRONATE SODIUM [Concomitant]
     Active Substance: ALENDRONATE SODIUM
  643. ASACOL [Concomitant]
     Active Substance: MESALAMINE
     Indication: Rheumatoid arthritis
  644. BORAGE OIL [Concomitant]
     Active Substance: BORAGE OIL
     Indication: Synovitis
  645. CALCIUM [Concomitant]
     Active Substance: CALCIUM
     Indication: Product used for unknown indication
     Route: 048
  646. CALCIUM GLUBIONATE [Concomitant]
     Active Substance: CALCIUM GLUBIONATE
     Indication: Rheumatoid arthritis
  647. CALCIUM GLUBIONATE [Concomitant]
     Active Substance: CALCIUM GLUBIONATE
     Route: 016
  648. CETIRIZINE [Concomitant]
     Active Substance: CETIRIZINE HYDROCHLORIDE
     Indication: Systemic lupus erythematosus
  649. CETIRIZINE [Concomitant]
     Active Substance: CETIRIZINE HYDROCHLORIDE
     Indication: Rheumatoid arthritis
  650. CETIRIZINE [Concomitant]
     Active Substance: CETIRIZINE HYDROCHLORIDE
  651. CETIRIZINE [Concomitant]
     Active Substance: CETIRIZINE HYDROCHLORIDE
  652. CETIRIZINE [Concomitant]
     Active Substance: CETIRIZINE HYDROCHLORIDE
     Route: 048
  653. CETIRIZINE [Concomitant]
     Active Substance: CETIRIZINE HYDROCHLORIDE
     Route: 048
  654. CETIRIZINE [Concomitant]
     Active Substance: CETIRIZINE HYDROCHLORIDE
  655. CETIRIZINE [Concomitant]
     Active Substance: CETIRIZINE HYDROCHLORIDE
  656. CORTISONE [Concomitant]
     Active Substance: CORTISONE
     Indication: Rheumatoid arthritis
  657. CORTISONE [Concomitant]
     Active Substance: CORTISONE
     Route: 048
  658. CORTISONE [Concomitant]
     Active Substance: CORTISONE
     Route: 058
  659. CORTISONE [Concomitant]
     Active Substance: CORTISONE
     Route: 061
  660. CORTISONE [Concomitant]
     Active Substance: CORTISONE
     Route: 058
  661. CORTISONE [Concomitant]
     Active Substance: CORTISONE
     Route: 048
  662. CORTISONE [Concomitant]
     Active Substance: CORTISONE
     Route: 003
  663. DICLOFENAC [Concomitant]
     Active Substance: DICLOFENAC
     Indication: Product used for unknown indication
     Route: 047
  664. DICLOFENAC [Concomitant]
     Active Substance: DICLOFENAC
  665. DICLOFENAC [Concomitant]
     Active Substance: DICLOFENAC
     Route: 047
  666. DICLOFENAC [Concomitant]
     Active Substance: DICLOFENAC
  667. DILTIAZEM [Concomitant]
     Active Substance: DILTIAZEM
     Indication: Product used for unknown indication
  668. DILTIAZEM [Concomitant]
     Active Substance: DILTIAZEM
     Route: 048
  669. DOXYCYCLINE [Concomitant]
     Active Substance: DOXYCYCLINE
     Indication: Product used for unknown indication
  670. EMEND [Concomitant]
     Active Substance: APREPITANT
     Indication: Product used for unknown indication
     Route: 003
  671. ENTYVIO [Concomitant]
     Active Substance: VEDOLIZUMAB
     Indication: Rheumatoid arthritis
     Route: 042
  672. ENTYVIO [Concomitant]
     Active Substance: VEDOLIZUMAB
     Indication: Psoriatic arthropathy
  673. HYRIMOZ [Concomitant]
     Active Substance: ADALIMUMAB-ADAZ
     Indication: Rheumatoid arthritis
     Route: 058
  674. HYRIMOZ [Concomitant]
     Active Substance: ADALIMUMAB-ADAZ
     Indication: Psoriatic arthropathy
     Route: 048
  675. HYRIMOZ [Concomitant]
     Active Substance: ADALIMUMAB-ADAZ
     Route: 042
  676. HYRIMOZ [Concomitant]
     Active Substance: ADALIMUMAB-ADAZ
     Route: 058
  677. PANTOPRAZOLE SODIUM [Concomitant]
     Active Substance: PANTOPRAZOLE SODIUM
     Indication: Product used for unknown indication
     Route: 013
  678. PANTOPRAZOLE SODIUM [Concomitant]
     Active Substance: PANTOPRAZOLE SODIUM
  679. QUETIAPINE FUMARATE [Concomitant]
     Active Substance: QUETIAPINE FUMARATE
     Indication: Rheumatoid arthritis
     Route: 048
  680. QUETIAPINE FUMARATE [Concomitant]
     Active Substance: QUETIAPINE FUMARATE
     Route: 003
  681. APREMILAST [Concomitant]
     Active Substance: APREMILAST
     Indication: Product used for unknown indication
  682. APREMILAST [Concomitant]
     Active Substance: APREMILAST
     Route: 048
  683. APREMILAST [Concomitant]
     Active Substance: APREMILAST
  684. APREMILAST [Concomitant]
     Active Substance: APREMILAST
  685. APREMILAST [Concomitant]
     Active Substance: APREMILAST
     Route: 042
  686. APREMILAST [Concomitant]
     Active Substance: APREMILAST
  687. APREMILAST [Concomitant]
     Active Substance: APREMILAST
     Route: 042
  688. DILTIAZEM HYDROCHLORIDE [Concomitant]
     Active Substance: DILTIAZEM HYDROCHLORIDE
     Indication: Product used for unknown indication
  689. DILTIAZEM HYDROCHLORIDE [Concomitant]
     Active Substance: DILTIAZEM HYDROCHLORIDE
  690. DILTIAZEM HYDROCHLORIDE [Concomitant]
     Active Substance: DILTIAZEM HYDROCHLORIDE
  691. HYDROCORTISONE [Concomitant]
     Active Substance: HYDROCORTISONE
     Indication: Rheumatoid arthritis
  692. HYDROCORTISONE [Concomitant]
     Active Substance: HYDROCORTISONE
     Route: 058
  693. HYDROCORTISONE [Concomitant]
     Active Substance: HYDROCORTISONE
     Route: 003
  694. HYDROCORTISONE [Concomitant]
     Active Substance: HYDROCORTISONE
  695. HYDROCORTISONE [Concomitant]
     Active Substance: HYDROCORTISONE
     Route: 061
  696. HYDROCORTISONE [Concomitant]
     Active Substance: HYDROCORTISONE
     Route: 048
  697. LEFLUNOMIDE [Concomitant]
     Active Substance: LEFLUNOMIDE
     Indication: Rheumatoid arthritis
  698. LEFLUNOMIDE [Concomitant]
     Active Substance: LEFLUNOMIDE
     Route: 048
  699. LEFLUNOMIDE [Concomitant]
     Active Substance: LEFLUNOMIDE
     Route: 048
  700. LEFLUNOMIDE [Concomitant]
     Active Substance: LEFLUNOMIDE
     Route: 048
  701. MOXIFLOXACIN HYDROCHLORIDE [Concomitant]
     Active Substance: MOXIFLOXACIN HYDROCHLORIDE
     Indication: Product used for unknown indication
     Route: 048
  702. MOXIFLOXACIN HYDROCHLORIDE [Concomitant]
     Active Substance: MOXIFLOXACIN HYDROCHLORIDE
  703. MYCOPHENOLATE MOFETIL [Concomitant]
     Active Substance: MYCOPHENOLATE MOFETIL
     Indication: Rheumatoid arthritis
     Route: 048
  704. MYCOPHENOLATE MOFETIL [Concomitant]
     Active Substance: MYCOPHENOLATE MOFETIL
  705. PREGABALIN [Concomitant]
     Active Substance: PREGABALIN
     Indication: Rheumatoid arthritis
     Route: 048
  706. PREGABALIN [Concomitant]
     Active Substance: PREGABALIN
     Route: 058
  707. PREGABALIN [Concomitant]
     Active Substance: PREGABALIN
  708. TOPICORT [Concomitant]
     Active Substance: DESOXIMETASONE
     Indication: Rheumatoid arthritis
  709. TUMS [Concomitant]
     Active Substance: CALCIUM CARBONATE
     Indication: Product used for unknown indication
  710. CYANOCOBALAMIN [Concomitant]
     Active Substance: CYANOCOBALAMIN
     Indication: Rheumatoid arthritis
  711. DICLOFENAC [Concomitant]
     Active Substance: DICLOFENAC
     Indication: Product used for unknown indication

REACTIONS (1)
  - Death [Fatal]
